FAERS Safety Report 7780134-4 (Version None)
Quarter: 2011Q3

REPORT INFORMATION
  Report Type: 
  Country: None (occurrence: None)
  Receive Date: 20110927
  Receipt Date: 20110914
  Transmission Date: 20111222
  Serious: Yes (Hospitalization, Other)
  Sender: FDA-Public Use
  Company Number: US-CELGENEUS-163-21880-11061317

PATIENT
  Sex: Male
  Weight: 83.99 kg

DRUGS (21)
  1. REVLIMID [Suspect]
     Indication: MULTIPLE MYELOMA
     Dosage: 25 MILLIGRAM
     Route: 048
     Dates: start: 20100901
  2. ASPIRIN [Concomitant]
     Dosage: 81 MILLIGRAM
     Route: 048
  3. CALCIUM CARBONATE +D [Concomitant]
     Dosage: 500/400
     Route: 048
  4. VITAMIN D [Concomitant]
     Dosage: 1 TABLET
     Route: 048
  5. OMEPRAZOLE [Concomitant]
     Dosage: 20 MILLIGRAM
     Route: 048
  6. REVLIMID [Suspect]
     Dosage: 10 MILLIGRAM
     Route: 048
     Dates: start: 20101201
  7. DILTIAZEM [Concomitant]
     Dosage: 120 MILLIGRAM
     Route: 048
  8. REVLIMID [Suspect]
     Dosage: 25MG-15MG
     Route: 048
     Dates: start: 20101201
  9. MULTIVITAMINS AND IRON [Concomitant]
     Dosage: 1 TABLET
     Route: 048
  10. FLUIDS [Concomitant]
     Route: 041
  11. REVLIMID [Suspect]
     Dosage: 10 MILLIGRAM
     Route: 048
     Dates: start: 20110501, end: 20110801
  12. NEUPOGEN [Concomitant]
     Dosage: 300 MICROGRAM
     Route: 058
  13. ACYCLOVIR [Concomitant]
     Dosage: 400 MILLIGRAM
     Route: 048
  14. DEXAMETHASONE [Concomitant]
     Dosage: 40 MILLIGRAM
     Route: 048
  15. DOCUSATE SODIUM [Concomitant]
     Dosage: 100 MILLIGRAM
     Route: 048
  16. VELCADE [Concomitant]
     Dosage: 1.3 MICROGRAM/SQ. METER
     Route: 041
     Dates: start: 20101101
  17. SODIUM CHLORIDE INJ [Concomitant]
     Dosage: .9 PERCENT
     Route: 041
  18. BISACODYL [Concomitant]
     Dosage: 81 MILLIGRAM
     Route: 048
  19. CIPROFLOXACIN [Concomitant]
     Route: 041
     Dates: start: 20110601
  20. NEURONTIN [Concomitant]
     Dosage: 300 MILLIGRAM
     Route: 065
     Dates: start: 20110101
  21. COMPAZINE [Concomitant]
     Dosage: 10 MILLIGRAM
     Route: 048

REACTIONS (5)
  - URINARY TRACT INFECTION [None]
  - LUNG NEOPLASM [None]
  - ERYTHEMA MULTIFORME [None]
  - ILEUS [None]
  - SYNCOPE [None]
